FAERS Safety Report 10221039 (Version 1)
Quarter: 2014Q2

REPORT INFORMATION
  Report Type: Spontaneous
  Country: US (occurrence: None)
  Receive Date: 20140604
  Receipt Date: 20140604
  Transmission Date: 20141212
  Serious: Yes (Other)
  Sender: FDA-Public Use
  Company Number: 2014-US-006447

PATIENT
  Age: 58 Year
  Sex: Female
  Weight: 59 kg

DRUGS (17)
  1. XYREM (SODIUM OXYBATE) ORAL SOLUTION, 500MG/ML [Suspect]
     Indication: NARCOLEPSY
     Route: 048
     Dates: start: 200210, end: 2007
  2. XYREM (SODIUM OXYBATE) ORAL SOLUTION, 500MG/ML [Suspect]
     Indication: CATAPLEXY
     Route: 048
     Dates: start: 200210, end: 2007
  3. NUVIGIL (ARMODAFINIL) [Concomitant]
  4. CLONAZEPAM (CLONAZEPAM) (CLONAZEPAM) [Concomitant]
  5. LEVOTHYROXINE (LEVOTHYROXINE SODIUM) [Concomitant]
  6. CILOSTAZOL (CILOSTAZOL) [Concomitant]
  7. DONEPEZIL (DONEPEZIL) [Concomitant]
  8. PREMARIN (ESTROGENS CONJUGATED) [Concomitant]
  9. ALENDRONATE SODIUM (ALENDRONATE SODIUM) (ALENDRONATE SODIUM) [Concomitant]
  10. ATORVASTATIN (ATORVASTATIN) [Concomitant]
  11. LISINOPRIL (LISINOPRIL) [Concomitant]
  12. HYDROCODONE/APAP (HYDROCODONE BITARTRATE, PARACETAMOL) [Concomitant]
  13. GABAPENTIN (GABAPENTIN) [Concomitant]
  14. CYCLOBENZAPRINE (CYCLOBENZAPRINE) [Concomitant]
  15. MULTI-VITAMINS VITAFIT (CALCIUM PANTOTHENATE, FOLIC ACID, VITAMINS NOS) [Concomitant]
  16. ASPIRIN BUFFERED (ACETYLSALICYLIC ACID) [Concomitant]
  17. VITAMIN B3 GERIMED (NICOTINAMIDE) [Concomitant]

REACTIONS (4)
  - Vascular stent insertion [None]
  - Cataract operation [None]
  - Seasonal allergy [None]
  - Cataract [None]
